FAERS Safety Report 20706248 (Version 1)
Quarter: 2022Q2

REPORT INFORMATION
  Report Type: Spontaneous
  Country: IT (occurrence: IT)
  Receive Date: 20220413
  Receipt Date: 20220413
  Transmission Date: 20220721
  Serious: Yes (Other)
  Sender: FDA-Public Use
  Company Number: IT-LUPIN PHARMACEUTICALS INC.-2022-05319

PATIENT
  Age: 61 Year
  Sex: Female

DRUGS (9)
  1. METHYLPREDNISOLONE [Suspect]
     Active Substance: METHYLPREDNISOLONE
     Indication: Pemphigus
     Dosage: 2 GRAM PER KILOGRAM, QD (HIGH DOSE) (INJECTION)
     Route: 042
  2. ETANERCEPT [Suspect]
     Active Substance: ETANERCEPT
     Indication: Pemphigus
     Dosage: 50 MG, EVERY WEEK, SOLUTION FOR INJECTION
     Route: 058
  3. PREDNISONE [Suspect]
     Active Substance: PREDNISONE
     Indication: Pemphigus
     Dosage: 01 GRAM PER KILOGRAM, QD
     Route: 048
  4. AZATHIOPRINE [Suspect]
     Active Substance: AZATHIOPRINE
     Indication: Pemphigus
     Dosage: 150 MG, QD
     Route: 065
  5. METHOTREXATE [Suspect]
     Active Substance: METHOTREXATE
     Indication: Pemphigus
     Dosage: 15 MG, EVERY WEEK
     Route: 065
  6. MYCOPHENOLATE MOFETIL [Suspect]
     Active Substance: MYCOPHENOLATE MOFETIL
     Indication: Pemphigus
     Dosage: 1 GRAM, QD
     Route: 065
  7. HUMAN IMMUNOGLOBULIN G [Suspect]
     Active Substance: HUMAN IMMUNOGLOBULIN G
     Indication: Pemphigus
     Dosage: 400 MILLIGRAM/KILOGRAM, QD, HIGH DOSE
     Route: 065
  8. DAPSONE [Suspect]
     Active Substance: DAPSONE
     Indication: Pemphigus
     Dosage: 100 MG, QD
     Route: 065
  9. TACROLIMUS [Suspect]
     Active Substance: TACROLIMUS
     Indication: Pemphigus
     Dosage: UNK
     Route: 061

REACTIONS (2)
  - Drug ineffective [Unknown]
  - Off label use [Unknown]
